FAERS Safety Report 20154478 (Version 4)
Quarter: 2022Q1

REPORT INFORMATION
  Report Type: Other
  Country: US (occurrence: US)
  Receive Date: 20211207
  Receipt Date: 20220225
  Transmission Date: 20220423
  Serious: No
  Sender: FDA-Public Use
  Company Number: US-NEUROCRINE BIOSCIENCES INC.-2021NBI06939

PATIENT

DRUGS (17)
  1. INGREZZA [Suspect]
     Active Substance: VALBENAZINE
     Indication: Tardive dyskinesia
     Dosage: 40 MILLIGRAM, QD
     Route: 048
     Dates: start: 20210730
  2. BACTRIM [Suspect]
     Active Substance: SULFAMETHOXAZOLE\TRIMETHOPRIM
  3. TROSPIUM CHLORIDE [Suspect]
     Active Substance: TROSPIUM CHLORIDE
     Dosage: UNK
  4. ACETAMINOPHEN [Concomitant]
     Active Substance: ACETAMINOPHEN
     Dosage: 1000 MILLIGRAM, BID
     Route: 048
  5. ALBUTEROL SULFATE [Concomitant]
     Active Substance: ALBUTEROL SULFATE
     Indication: Wheezing
     Dosage: 90 MICROGRAM, INHALE 2 PUFFS EVERY 6 HOURS IF NEEDED
  6. BENZONATATE [Concomitant]
     Active Substance: BENZONATATE
     Indication: Cough
     Dosage: 100 MILLIGRAM, TID, MAY INCREASE TO 2 CAPSULES EVERY 8 HOURS AS NEEDED
     Route: 048
  7. CYANOCOBALAMIN [Concomitant]
     Active Substance: CYANOCOBALAMIN
     Dosage: 1000 MICROGRAM, QD
     Route: 060
  8. DEXAMETHASONE [Concomitant]
     Active Substance: DEXAMETHASONE
     Dosage: 5 MILLILITER, SWISH AND SPIT TID, KEEP IN MOUTH FOR 5 MINUTES BEFORE SPITTING
  9. DOCUSATE SODIUM [Concomitant]
     Active Substance: DOCUSATE SODIUM
     Dosage: 100 MILLIGRAM, BID
     Route: 048
  10. DULOXETINE [Concomitant]
     Active Substance: DULOXETINE
     Dosage: 120 MILLIGRAM, QD, FOR 7 DAYS
  11. FAMOTIDINE [Concomitant]
     Active Substance: FAMOTIDINE
     Dosage: 20 MILLIGRAM, BID
     Route: 048
  12. GABAPENTIN [Concomitant]
     Active Substance: GABAPENTIN
     Indication: Pain
     Dosage: 100 MILLIGRAM, TAKE 1-2 CAPSULES 3 TIMES A DAY
  13. LORAZEPAM [Concomitant]
     Active Substance: LORAZEPAM
     Dosage: 0.5 MILLIGRAM
  14. MODAFINIL [Concomitant]
     Active Substance: MODAFINIL
     Dosage: 100 MILLIGRAM
     Route: 048
  15. TRAMADOL [Concomitant]
     Active Substance: TRAMADOL
     Indication: Pain
     Dosage: 50 MILLIGRAM, BID
     Route: 048
  16. TRAZODONE [Concomitant]
     Active Substance: TRAZODONE HYDROCHLORIDE
     Dosage: 100 MILLIGRAM
  17. TROSPIUM [Concomitant]
     Active Substance: TROSPIUM
     Dosage: 20 MILLIGRAM, TAKE 1/2 TABLET TWICE A DAY
     Route: 048

REACTIONS (7)
  - Contusion [Unknown]
  - Hypoaesthesia [Unknown]
  - Abdominal discomfort [Unknown]
  - Dizziness [Unknown]
  - Hypersensitivity [Unknown]
  - Influenza [Unknown]
  - Malaise [Unknown]

NARRATIVE: CASE EVENT DATE: 20210101
